FAERS Safety Report 7729190-X (Version None)
Quarter: 2011Q3

REPORT INFORMATION
  Report Type: 
  Country: None (occurrence: None)
  Receive Date: 20110906
  Receipt Date: 20110901
  Transmission Date: 20111222
  Serious: Yes (Hospitalization, Other)
  Sender: FDA-Public Use
  Company Number: US-JNJFOC-20110506226

PATIENT
  Sex: Female

DRUGS (4)
  1. LEVAQUIN [Suspect]
     Indication: SINUSITIS
     Route: 048
     Dates: start: 20060701, end: 20080601
  2. DECADRON [Suspect]
     Indication: SINUSITIS
     Route: 065
     Dates: start: 20070816
  3. LEVAQUIN [Suspect]
     Indication: PHARYNGITIS
     Route: 048
     Dates: start: 20060701, end: 20080601
  4. DECADRON [Suspect]
     Indication: PHARYNGITIS
     Route: 065
     Dates: start: 20070816

REACTIONS (2)
  - TENDON RUPTURE [None]
  - EPICONDYLITIS [None]
